FAERS Safety Report 10690241 (Version 1)
Quarter: 2015Q1

REPORT INFORMATION
  Report Type: Spontaneous
  Country: US (occurrence: None)
  Receive Date: 20150102
  Receipt Date: 20150102
  Transmission Date: 20150720
  Serious: Yes (Other)
  Sender: FDA-Public Use
  Company Number: None

PATIENT
  Age: 73 Year
  Sex: Male

DRUGS (1)
  1. XTANDI [Suspect]
     Active Substance: ENZALUTAMIDE
     Indication: PROSTATE CANCER
     Route: 048
     Dates: start: 20141106, end: 20141221

REACTIONS (5)
  - Bone pain [None]
  - Nausea [None]
  - Arthralgia [None]
  - Drug ineffective [None]
  - Ascites [None]

NARRATIVE: CASE EVENT DATE: 20141221
